FAERS Safety Report 8454844-X (Version None)
Quarter: 2012Q2

REPORT INFORMATION
  Report Type: 
  Country: None (occurrence: None)
  Receive Date: 20120614
  Receipt Date: 20120601
  Transmission Date: 20120825
  Serious: Yes (Other)
  Sender: FDA-Public Use
  Company Number: 2012MA007025

PATIENT
  Age: 72 Year
  Sex: Female

DRUGS (8)
  1. DOXAZOSIN MESYLATE [Suspect]
     Indication: HYPERTENSION
     Dosage: 2 MG; BID, PO
     Route: 048
     Dates: start: 20120222, end: 20120501
  2. FUROSEMIDE [Concomitant]
  3. ISOSORBIDE DINITRATE [Concomitant]
  4. NIFEDIPINE [Concomitant]
  5. CLOPIDOGREL [Concomitant]
  6. LEVOTHYROXINE SODIUM [Concomitant]
  7. ALFACALCIDOL [Concomitant]
  8. ATORVASTATIN [Concomitant]

REACTIONS (1)
  - SUICIDAL IDEATION [None]
